FAERS Safety Report 15464710 (Version 1)
Quarter: 2018Q4

REPORT INFORMATION
  Report Type: Spontaneous
  Country: US (occurrence: US)
  Receive Date: 20181004
  Receipt Date: 20181004
  Transmission Date: 20190204
  Serious: No
  Sender: FDA-Public Use
  Company Number: US-ASTRAZENECA-2018SF25356

PATIENT
  Sex: Female

DRUGS (1)
  1. BYDUREON [Suspect]
     Active Substance: EXENATIDE
     Dosage: UNKNOWN DSOE AND FREQUENCY
     Route: 065

REACTIONS (4)
  - Injection site nodule [Unknown]
  - Blood glucose increased [Recovered/Resolved]
  - Injection site pain [Unknown]
  - Injection site erythema [Unknown]
